FAERS Safety Report 4652740-7 (Version None)
Quarter: 2005Q2

REPORT INFORMATION
  Report Type: 
  Country: None (occurrence: None)
  Receive Date: 20050502
  Receipt Date: 20050421
  Transmission Date: 20051028
  Serious: Yes (Hospitalization)
  Sender: FDA-Public Use
  Company Number: Q05-012

PATIENT
  Age: 71 Year
  Sex: Male
  Weight: 77.0208 kg

DRUGS (6)
  1. PROCRIT [Suspect]
     Indication: ANAEMIA
     Dosage: 60,000 IU SQ WEEKLY
     Route: 058
     Dates: start: 20050404
  2. QUADRAMET [Suspect]
     Indication: BONE PAIN
     Dosage: SAMARIUM SM-153 76.5 MCI   IV
     Route: 042
     Dates: start: 20050330
  3. QUADRAMET [Suspect]
     Indication: METASTASES TO BONE
     Dosage: SAMARIUM SM-153 76.5 MCI   IV
     Route: 042
     Dates: start: 20050330
  4. HYDROCONE [Concomitant]
  5. KYTRIL [Concomitant]
  6. ULTRACET [Concomitant]

REACTIONS (7)
  - ANAEMIA [None]
  - BONE PAIN [None]
  - CONSTIPATION [None]
  - METASTASES TO BONE [None]
  - PYELONEPHRITIS [None]
  - SEPSIS [None]
  - THROMBOCYTOPENIA [None]
